FAERS Safety Report 14173952 (Version 1)
Quarter: 2017Q4

REPORT INFORMATION
  Report Type: Spontaneous
  Country: HR (occurrence: HR)
  Receive Date: 20171109
  Receipt Date: 20171109
  Transmission Date: 20180321
  Serious: Yes (Other)
  Sender: FDA-Public Use
  Company Number: HR-TEVA-821508ROM

PATIENT
  Age: 79 Year
  Sex: Female
  Weight: 98 kg

DRUGS (5)
  1. LANITOP [Concomitant]
     Active Substance: METILDIGOXIN
     Indication: CARDIOMYOPATHY
     Dosage: .1 MILLIGRAM DAILY;
     Route: 048
     Dates: start: 201709
  2. EDEMID FORTE [Suspect]
     Active Substance: FUROSEMIDE
     Indication: ESSENTIAL HYPERTENSION
     Dosage: 125 MILLIGRAM DAILY;
     Route: 048
     Dates: start: 2007
  3. LOSARTIC [Suspect]
     Active Substance: LOSARTAN POTASSIUM
     Indication: CHRONIC KIDNEY DISEASE
     Dosage: 50 MILLIGRAM DAILY;
     Route: 048
     Dates: start: 201707
  4. AERIUS TABLETE S FILM COATED 5 MG [Concomitant]
     Dosage: 5 MILLIGRAM DAILY;
     Route: 048
     Dates: start: 201708
  5. CARVETREND [Concomitant]
     Active Substance: CARVEDILOL
     Indication: MYOCARDIAL ISCHAEMIA
     Dosage: 12.5 MILLIGRAM DAILY;
     Route: 048
     Dates: start: 201709

REACTIONS (1)
  - Dermatitis [Not Recovered/Not Resolved]

NARRATIVE: CASE EVENT DATE: 201707
